FAERS Safety Report 24756918 (Version 1)
Quarter: 2024Q4

REPORT INFORMATION
  Report Type: Report from Study
  Country: CN (occurrence: CN)
  Receive Date: 20241220
  Receipt Date: 20241220
  Transmission Date: 20250114
  Serious: Yes (Death)
  Sender: ROCHE
  Company Number: CN-ROCHE-10000158201

PATIENT
  Age: 63 Year
  Sex: Female

DRUGS (1)
  1. POLATUZUMAB VEDOTIN [Suspect]
     Active Substance: POLATUZUMAB VEDOTIN
     Indication: Lymphoma
     Route: 065

REACTIONS (1)
  - Death [Fatal]
